FAERS Safety Report 6769625-2 (Version None)
Quarter: 2010Q2

REPORT INFORMATION
  Report Type: 
  Country: None (occurrence: None)
  Receive Date: 20100608
  Receipt Date: 20100531
  Transmission Date: 20101027
  Serious: Yes (Other)
  Sender: FDA-Public Use
  Company Number: 2010SP030013

PATIENT
  Age: 48 Year
  Sex: Male

DRUGS (7)
  1. MIRTAZAPINE [Suspect]
     Indication: DEPRESSION
     Dosage: 45 MG; QD; PO
     Route: 048
     Dates: end: 20100518
  2. ARIPIRAZOLE [Concomitant]
  3. CUD LIVER OIL [Concomitant]
  4. SALMETEROL [Concomitant]
  5. SEVEVENT [Concomitant]
  6. THEOPHYLLINE [Concomitant]
  7. TRAMADOL HCL [Concomitant]

REACTIONS (4)
  - DYSPNOEA [None]
  - LOCAL SWELLING [None]
  - SWELLING [None]
  - WEIGHT INCREASED [None]
